FAERS Safety Report 10434196 (Version 2)
Quarter: 2014Q3

REPORT INFORMATION
  Report Type: Spontaneous
  Country: US (occurrence: US)
  Receive Date: 20140905
  Receipt Date: 20140916
  Transmission Date: 20150326
  Serious: Yes (Other)
  Sender: FDA-Public Use
  Company Number: US-ALLERGAN-1418804US

PATIENT
  Age: 49 Year
  Sex: Female

DRUGS (2)
  1. ADVIL [Concomitant]
     Active Substance: IBUPROFEN
     Indication: PRODUCT USED FOR UNKNOWN INDICATION
     Dosage: UNK, PRN
  2. LATISSE [Suspect]
     Active Substance: BIMATOPROST
     Indication: GROWTH OF EYELASHES
     Dosage: ONE DROP TO EACH UPPER EYELID
     Route: 061
     Dates: start: 2014

REACTIONS (3)
  - Therapeutic response decreased [Unknown]
  - Uterine leiomyoma [Unknown]
  - Medication error [Unknown]
